FAERS Safety Report 10606508 (Version 3)
Quarter: 2015Q1

REPORT INFORMATION
  Report Type: Spontaneous
  Country: US (occurrence: US)
  Receive Date: 20141125
  Receipt Date: 20150213
  Transmission Date: 20150720
  Serious: Yes (Hospitalization, Disabling, Other)
  Sender: FDA-Public Use
  Company Number: US-009507513-1411USA010093

PATIENT
  Age: 69 Year
  Sex: Male
  Weight: 82.54 kg

DRUGS (3)
  1. METFORMIN [Concomitant]
     Active Substance: METFORMIN HYDROCHLORIDE
     Dosage: UNK
  2. KLONOPIN [Concomitant]
     Active Substance: CLONAZEPAM
     Dosage: UNK
  3. JANUMET [Suspect]
     Active Substance: METFORMIN HYDROCHLORIDE\SITAGLIPTIN PHOSPHATE
     Indication: TYPE 2 DIABETES MELLITUS
     Dosage: STRENGTH 50/1000 (UNITS NOT REPORTED)
     Route: 048
     Dates: start: 20121107, end: 20141101

REACTIONS (3)
  - Pancreatic carcinoma [Not Recovered/Not Resolved]
  - Metastases to small intestine [Unknown]
  - Metastases to stomach [Unknown]

NARRATIVE: CASE EVENT DATE: 201411
